FAERS Safety Report 6194993-2 (Version None)
Quarter: 2009Q2

REPORT INFORMATION
  Report Type: 
  Country: None (occurrence: None)
  Receive Date: 20090519
  Receipt Date: 20090512
  Transmission Date: 20091009
  Serious: Yes (Other)
  Sender: FDA-Public Use
  Company Number: A0783747A

PATIENT
  Age: 63 Year
  Sex: Female

DRUGS (3)
  1. ADVAIR HFA [Suspect]
     Indication: ASTHMA
     Dosage: 1PUFF TWICE PER DAY
     Route: 055
     Dates: start: 20050101
  2. OTC VITAMINS [Concomitant]
  3. CALCIUM [Concomitant]

REACTIONS (2)
  - BONE DISORDER [None]
  - VISUAL ACUITY REDUCED [None]
